FAERS Safety Report 24886241 (Version 1)
Quarter: 2025Q1

REPORT INFORMATION
  Report Type: Spontaneous
  Country: US (occurrence: US)
  Receive Date: 20250125
  Receipt Date: 20250125
  Transmission Date: 20250409
  Serious: Yes (Other)
  Sender: JOHNSON AND JOHNSON
  Company Number: US-JNJFOC-20250132657

PATIENT
  Sex: Female

DRUGS (5)
  1. INVEGA SUSTENNA [Suspect]
     Active Substance: PALIPERIDONE PALMITATE
     Indication: Product used for unknown indication
     Route: 030
  2. INVEGA SUSTENNA [Suspect]
     Active Substance: PALIPERIDONE PALMITATE
  3. INVEGA SUSTENNA [Suspect]
     Active Substance: PALIPERIDONE PALMITATE
  4. INVEGA [Suspect]
     Active Substance: PALIPERIDONE
     Indication: Product used for unknown indication
     Route: 048
  5. INVEGA [Suspect]
     Active Substance: PALIPERIDONE
     Route: 048

REACTIONS (7)
  - Myocardial infarction [Unknown]
  - Cerebrovascular accident [Unknown]
  - Hypertension [Unknown]
  - Weight increased [Unknown]
  - Tachycardia [Unknown]
  - Hypotension [Unknown]
  - Memory impairment [Unknown]
